FAERS Safety Report 15860452 (Version 3)
Quarter: 2019Q2

REPORT INFORMATION
  Report Type: Report from Study
  Country: US (occurrence: US)
  Receive Date: 20190123
  Receipt Date: 20190626
  Transmission Date: 20190711
  Serious: Yes (Hospitalization, Other)
  Sender: FDA-Public Use
  Company Number: US-EXELIXIS-CABO-19018302

PATIENT
  Sex: Male

DRUGS (2)
  1. WARFARIN [Suspect]
     Active Substance: WARFARIN
     Indication: PRODUCT USED FOR UNKNOWN INDICATION
     Dosage: UNK
  2. CABOMETYX [Suspect]
     Active Substance: CABOZANTINIB S-MALATE
     Indication: RENAL CANCER
     Dosage: 40 MG, QD (PM WITHOUT FOOD)
     Dates: start: 20190105, end: 201905

REACTIONS (9)
  - Impaired healing [Unknown]
  - Oedema peripheral [Unknown]
  - Fatigue [Unknown]
  - Necrosis [Unknown]
  - Wound infection [Recovering/Resolving]
  - Pleural effusion [Unknown]
  - Ascites [Unknown]
  - Weight decreased [Unknown]
  - Blood pressure increased [Not Recovered/Not Resolved]

NARRATIVE: CASE EVENT DATE: 2019
